FAERS Safety Report 9744339 (Version 1)
Quarter: 2013Q4

REPORT INFORMATION
  Report Type: Spontaneous
  Country: US (occurrence: US)
  Receive Date: 20131210
  Receipt Date: 20131210
  Transmission Date: 20140711
  Serious: Yes (Other)
  Sender: FDA-Public Use
  Company Number: US-ABBVIE-13P-163-1177071-00

PATIENT
  Sex: Male
  Weight: 131.66 kg

DRUGS (9)
  1. ANDROGEL [Suspect]
     Indication: KLINEFELTER^S SYNDROME
     Dosage: ONE PUMP EACH SHOULDER
     Dates: start: 201307
  2. ANDROGEL [Suspect]
     Indication: KLINEFELTER^S SYNDROME
     Dosage: PACKETS
     Dates: start: 201008, end: 2013
  3. JANUMET [Concomitant]
     Indication: PRODUCT USED FOR UNKNOWN INDICATION
  4. LIVALO [Concomitant]
     Indication: BLOOD CHOLESTEROL INCREASED
  5. PROPANELOL [Concomitant]
     Indication: HYPERTENSION
  6. BENICAR [Concomitant]
     Indication: HYPERTENSION
  7. LEXAPRO [Concomitant]
     Indication: DEPRESSION
  8. TRILIPIX [Concomitant]
     Indication: BLOOD CHOLESTEROL INCREASED
  9. NABUMETONE [Concomitant]
     Indication: ARTHRITIS

REACTIONS (4)
  - Glycosylated haemoglobin increased [Unknown]
  - Blood testosterone decreased [Unknown]
  - Blood testosterone free decreased [Unknown]
  - Fatigue [Unknown]
